FAERS Safety Report 7532464-9 (Version None)
Quarter: 2011Q2

REPORT INFORMATION
  Report Type: 
  Country: None (occurrence: None)
  Receive Date: 20110608
  Receipt Date: 20110525
  Transmission Date: 20111010
  Serious: Yes (Hospitalization, Other)
  Sender: FDA-Public Use
  Company Number: PHHY2011US38261

PATIENT
  Sex: Female

DRUGS (7)
  1. TASIGNA [Suspect]
  2. GLEEVEC [Suspect]
     Dosage: 100 MG, TID
  3. GABAPENTIN [Concomitant]
     Dosage: UNK UKN, UNK
  4. IBUPROFEN [Concomitant]
     Dosage: UNK UKN, UNK
  5. ZOLPIDEM [Concomitant]
     Dosage: UNK UKN, UNK
  6. AMEPRASOLD [Concomitant]
     Dosage: UNK UKN, UNK
  7. CYCLOBENZAPRINE [Concomitant]
     Dosage: UNK UKN, UNK

REACTIONS (9)
  - CEREBROVASCULAR ACCIDENT [None]
  - CRYING [None]
  - DYSGRAPHIA [None]
  - MALAISE [None]
  - DEPRESSION [None]
  - BLOOD ELECTROLYTES INCREASED [None]
  - BONE PAIN [None]
  - ABDOMINAL PAIN UPPER [None]
  - NAUSEA [None]
